FAERS Safety Report 6837687-X (Version None)
Quarter: 2010Q3

REPORT INFORMATION
  Report Type: 
  Country: None (occurrence: None)
  Receive Date: 20100707
  Receipt Date: 20100629
  Transmission Date: 20110219
  Serious: Yes (Other)
  Sender: FDA-Public Use
  Company Number: 2010SP024558

PATIENT
  Age: 75 Year
  Sex: Female

DRUGS (8)
  1. MIRTAZAPINE [Suspect]
     Indication: DEPRESSIVE SYMPTOM
     Dosage: 15 MG; QD; PO, 15 MG; QOD; PO
     Route: 048
     Dates: start: 20100201, end: 20100202
  2. MIRTAZAPINE [Suspect]
     Indication: DEPRESSIVE SYMPTOM
     Dosage: 15 MG; QD; PO, 15 MG; QOD; PO
     Route: 048
     Dates: start: 20100208, end: 20100214
  3. PAROXETINE HYDROCHLORIDE [Concomitant]
  4. PRAVASTATIN SODIUM [Concomitant]
  5. EFONIDIPINE [Concomitant]
  6. SENNOSIDE [Concomitant]
  7. LANSOPRAZOLE [Concomitant]
  8. DOGMATYL [Concomitant]

REACTIONS (5)
  - EXTRAPYRAMIDAL DISORDER [None]
  - FEELING ABNORMAL [None]
  - GAIT DISTURBANCE [None]
  - MASKED FACIES [None]
  - PARKINSONISM [None]
